FAERS Safety Report 19566281 (Version 1)
Quarter: 2021Q3

REPORT INFORMATION
  Report Type: Spontaneous
  Country: US (occurrence: US)
  Receive Date: 20210715
  Receipt Date: 20210715
  Transmission Date: 20211014
  Serious: No
  Sender: FDA-Public Use
  Company Number: US-PFIZER INC-2021570961

PATIENT
  Age: 45 Year
  Sex: Female

DRUGS (2)
  1. IBRANCE [Suspect]
     Active Substance: PALBOCICLIB
     Dosage: 125 MG
     Dates: start: 20200114, end: 20210518
  2. LETROZOLE. [Suspect]
     Active Substance: LETROZOLE
     Dosage: UNK

REACTIONS (1)
  - Neoplasm progression [Unknown]
